FAERS Safety Report 15682058 (Version 1)
Quarter: 2018Q4

REPORT INFORMATION
  Report Type: Spontaneous
  Country: US (occurrence: US)
  Receive Date: 20181203
  Receipt Date: 20181203
  Transmission Date: 20190205
  Serious: Yes (Hospitalization)
  Sender: FDA-Public Use
  Company Number: None

PATIENT
  Age: 42 Year
  Sex: Male
  Weight: 90 kg

DRUGS (1)
  1. DULOXETINE HCL DR 30 MG CAP [Suspect]
     Active Substance: DULOXETINE HYDROCHLORIDE
     Indication: DEPRESSION
     Dosage: ?          QUANTITY:1 CAPSULE(S);?
     Route: 048
     Dates: start: 20180430, end: 20181126

REACTIONS (8)
  - Amnesia [None]
  - Depression [None]
  - Anger [None]
  - Paranoia [None]
  - Suicidal ideation [None]
  - Therapy cessation [None]
  - Anxiety [None]
  - Self-injurious ideation [None]

NARRATIVE: CASE EVENT DATE: 20181130
